FAERS Safety Report 5106207-2 (Version None)
Quarter: 2006Q3

REPORT INFORMATION
  Report Type: 
  Country: None (occurrence: None)
  Receive Date: 20060912
  Receipt Date: 20060830
  Transmission Date: 20061208
  Serious: Yes (Other)
  Sender: FDA-Public Use
  Company Number: 2006105355

PATIENT
  Age: 4 Year
  Sex: Female

DRUGS (5)
  1. METHYLPREDNISOLONE [Suspect]
     Indication: ASTHMA
     Dosage: 6 MG/KG (UNKNOWN), INTRAVENOUS
     Route: 042
  2. HYDROCORTISONE [Concomitant]
  3. ALL OTHER THERAPEUTIC PRODUCTS (ALL OTHER THERAPEUTIC PRODUCTS) [Concomitant]
  4. SEVOLFURANE (SEVOFLURANE) [Concomitant]
  5. FUROSEMIDE [Concomitant]

REACTIONS (8)
  - BLOOD PRESSURE INCREASED [None]
  - CARDIOMEGALY [None]
  - COMA [None]
  - CONVULSION [None]
  - LETHARGY [None]
  - MUSCLE SPASTICITY [None]
  - NERVOUS SYSTEM DISORDER [None]
  - PULMONARY OEDEMA [None]
